FAERS Safety Report 5774541-9 (Version None)
Quarter: 2008Q2

REPORT INFORMATION
  Report Type: 
  Country: None (occurrence: None)
  Receive Date: 20080616
  Receipt Date: 20080611
  Transmission Date: 20081010
  Serious: Yes (Other)
  Sender: FDA-Public Use
  Company Number: JP-PFIZER INC-2008049699

PATIENT

DRUGS (5)
  1. METHYLPREDNISOLONE 16MG TAB [Suspect]
     Indication: NEPHROTIC SYNDROME
  2. CYCLOSPORINE [Concomitant]
  3. PREDONINE [Concomitant]
  4. MIZORIBINE [Concomitant]
  5. CORTICOSTEROIDS [Concomitant]
     Route: 048

REACTIONS (1)
  - THROMBOSIS [None]
